FAERS Safety Report 23202683 (Version 1)
Quarter: 2023Q4

REPORT INFORMATION
  Report Type: Spontaneous
  Country: US (occurrence: US)
  Receive Date: 20231120
  Receipt Date: 20231120
  Transmission Date: 20240109
  Serious: No
  Sender: FDA-Public Use
  Company Number: US-BAXTER-2023BAX035674

PATIENT
  Sex: Male

DRUGS (1)
  1. EXTRANEAL [Suspect]
     Active Substance: CALCIUM CHLORIDE\ICODEXTRIN\MAGNESIUM CHLORIDE\SODIUM CHLORIDE\SODIUM LACTATE
     Dosage: UNK
     Route: 033
     Dates: start: 202309

REACTIONS (5)
  - Peritoneal dialysate leakage [Unknown]
  - Post procedural complication [Unknown]
  - Drug hypersensitivity [Not Recovered/Not Resolved]
  - Scrotal dermatitis [Unknown]
  - Rash [Unknown]
